FAERS Safety Report 8875596 (Version 1)
Quarter: 2012Q4

REPORT INFORMATION
  Report Type: 
  Country: US (occurrence: US)
  Receive Date: 20121030
  Receipt Date: 20121030
  Transmission Date: 20130627
  Serious: No
  Sender: FDA-Public Use
  Company Number: US-ABBOTT-12P-163-0923036-00

PATIENT
  Sex: Female
  Weight: 66 kg

DRUGS (10)
  1. KALETRA TABLETS 200MG/50MG [Suspect]
     Indication: HIV INFECTION
     Dosage: 200/50, 2 tablets daily
     Dates: start: 20120122
  2. TRUVADA [Concomitant]
     Indication: HIV INFECTION
  3. ACYCLOVIR [Concomitant]
     Indication: HIV INFECTION
  4. AZITHROMYCIN [Concomitant]
     Indication: HIV INFECTION
  5. MEPRON [Concomitant]
     Indication: PROPHYLAXIS
  6. MEPRON [Concomitant]
     Indication: PNEUMONIA
  7. NEXIUM [Concomitant]
     Indication: GASTROOESOPHAGEAL REFLUX DISEASE
  8. SYNTHROID [Concomitant]
     Indication: HYPOTHYROIDISM
  9. ZOFRAN [Concomitant]
     Indication: NAUSEA
  10. ENSURE [Concomitant]
     Indication: PRODUCT USED FOR UNKNOWN INDICATION

REACTIONS (2)
  - Antiviral drug level below therapeutic [Not Recovered/Not Resolved]
  - Malabsorption [Not Recovered/Not Resolved]
